FAERS Safety Report 11538356 (Version 1)
Quarter: 2015Q3

REPORT INFORMATION
  Report Type: Spontaneous
  Country: GB (occurrence: GB)
  Receive Date: 20150922
  Receipt Date: 20150922
  Transmission Date: 20151125
  Serious: Yes (Other)
  Sender: FDA-Public Use
  Company Number: GB-ASTRAZENECA-2015SE80508

PATIENT
  Age: 67 Year
  Sex: Female
  Weight: 97 kg

DRUGS (10)
  1. METFORMIN [Concomitant]
     Active Substance: METFORMIN HYDROCHLORIDE
     Dates: start: 20150911
  2. REFRESH CELLUVISC [Concomitant]
     Active Substance: CARBOXYMETHYLCELLULOSE SODIUM
  3. METFORMIN [Concomitant]
     Active Substance: METFORMIN HYDROCHLORIDE
  4. LACRI-LUBE [Concomitant]
  5. GLUCOPHAGE [Concomitant]
     Active Substance: METFORMIN HYDROCHLORIDE
  6. SIMVASTATIN. [Concomitant]
     Active Substance: SIMVASTATIN
  7. GLICLAZIDE [Concomitant]
     Active Substance: GLICLAZIDE
  8. TAMOXIFEN [Concomitant]
     Active Substance: TAMOXIFEN
  9. FORXIGA [Suspect]
     Active Substance: DAPAGLIFLOZIN
     Indication: TYPE 2 DIABETES MELLITUS
     Route: 048
     Dates: start: 20150513, end: 20150819
  10. FUROSEMIDE. [Concomitant]
     Active Substance: FUROSEMIDE

REACTIONS (6)
  - Pyelonephritis [Recovered/Resolved with Sequelae]
  - Cholelithiasis [Unknown]
  - Asthenia [Unknown]
  - Hydronephrosis [Unknown]
  - Cholecystitis [Unknown]
  - Kidney infection [Unknown]

NARRATIVE: CASE EVENT DATE: 20150810
